FAERS Safety Report 6675221-8 (Version None)
Quarter: 2010Q2

REPORT INFORMATION
  Report Type: 
  Country: None (occurrence: None)
  Receive Date: 20100409
  Receipt Date: 20100330
  Transmission Date: 20101027
  Serious: Yes (Other)
  Sender: FDA-Public Use
  Company Number: US-PFIZER INC-2010040743

PATIENT
  Sex: Female
  Weight: 68.027 kg

DRUGS (13)
  1. CHANTIX [Suspect]
     Indication: SMOKING CESSATION THERAPY
     Dosage: 0.5 MG, 1X/DAY
     Route: 048
  2. NEXIUM [Concomitant]
     Dosage: 40 MG, 1X/DAY
     Route: 048
  3. PREMARIN [Concomitant]
     Dosage: 0.625 MG, 1X/DAY
     Route: 048
  4. CRESTOR [Concomitant]
     Indication: BLOOD CHOLESTEROL
     Dosage: 20 MG, 1X/DAY
     Route: 048
  5. TOPAMAX [Concomitant]
     Dosage: 100 MG, 2X/DAY
     Route: 048
  6. POTASSIUM [Concomitant]
     Dosage: 20 MEQ, 2X/DAY
     Route: 048
  7. FUROSEMIDE [Concomitant]
     Dosage: 40 MG, 1X/DAY
     Route: 048
  8. TRAMADOL [Concomitant]
     Indication: PAIN
     Dosage: 50 MG, UNK
     Route: 048
  9. CYMBALTA [Concomitant]
     Dosage: 60 MG, 1X/DAY
     Route: 048
  10. LAMICTAL CD [Concomitant]
     Indication: DEPRESSION
     Dosage: 100 MG, 1X/DAY
     Route: 048
  11. BENICAR [Concomitant]
     Dosage: 20 MG, 4X/DAY
     Route: 048
  12. NITROSTAT [Concomitant]
     Dosage: UNK
  13. ALBUTEROL [Concomitant]
     Dosage: UNK

REACTIONS (3)
  - DEPRESSION [None]
  - SLEEP DISORDER [None]
  - WEIGHT DECREASED [None]
